FAERS Safety Report 17381527 (Version 1)
Quarter: 2020Q1

REPORT INFORMATION
  Report Type: Spontaneous
  Country: US (occurrence: US)
  Receive Date: 20200206
  Receipt Date: 20200206
  Transmission Date: 20200409
  Serious: Yes (Hospitalization)
  Sender: FDA-Public Use
  Company Number: US-ABBVIE-19K-163-2796442-00

PATIENT
  Age: 61 Year
  Sex: Female
  Weight: 85.73 kg

DRUGS (4)
  1. HUMIRA [Suspect]
     Active Substance: ADALIMUMAB
     Indication: RHEUMATOID ARTHRITIS
     Route: 058
  2. ENBREL [Suspect]
     Active Substance: ETANERCEPT
     Indication: RHEUMATOID ARTHRITIS
     Route: 065
  3. METHOTREXATE. [Suspect]
     Active Substance: METHOTREXATE
     Indication: RHEUMATOID ARTHRITIS
     Route: 065
  4. XELJANZ [Suspect]
     Active Substance: TOFACITINIB CITRATE
     Indication: RHEUMATOID ARTHRITIS
     Dosage: TAB 1 IN THE MORNING AND 1 AT NIGHT
     Route: 048
     Dates: start: 201706, end: 201805

REACTIONS (28)
  - Radial nerve palsy [Recovering/Resolving]
  - Malaise [Unknown]
  - Pulmonary contusion [Not Recovered/Not Resolved]
  - Drug ineffective [Unknown]
  - Dyspnoea [Unknown]
  - Musculoskeletal disorder [Not Recovered/Not Resolved]
  - Dysstasia [Unknown]
  - Chest injury [Not Recovered/Not Resolved]
  - Weight bearing difficulty [Unknown]
  - Drug intolerance [Unknown]
  - Gait disturbance [Unknown]
  - Rheumatoid arthritis [Unknown]
  - Wheelchair user [Unknown]
  - Rib fracture [Unknown]
  - Skin injury [Not Recovered/Not Resolved]
  - Diplegia [Unknown]
  - Walking aid user [Unknown]
  - Musculoskeletal pain [Not Recovered/Not Resolved]
  - Weight increased [Unknown]
  - Dermal cyst [Recovered/Resolved]
  - Pain [Unknown]
  - Fracture pain [Unknown]
  - Upper limb fracture [Recovering/Resolving]
  - Peripheral swelling [Not Recovered/Not Resolved]
  - Accident [Not Recovered/Not Resolved]
  - Weight fluctuation [Unknown]
  - Viral infection [Unknown]
  - Migraine [Unknown]

NARRATIVE: CASE EVENT DATE: 2010
